FAERS Safety Report 5302187-5 (Version None)
Quarter: 2007Q2

REPORT INFORMATION
  Report Type: 
  Country: None (occurrence: None)
  Receive Date: 20070419
  Receipt Date: 20070410
  Transmission Date: 20071010
  Serious: Yes (Hospitalization)
  Sender: FDA-Public Use
  Company Number: 2007PK00809

PATIENT
  Age: 19567 Day
  Sex: Female
  Weight: 78 kg

DRUGS (3)
  1. ZOLADEX [Suspect]
     Indication: BREAST CANCER
     Route: 058
     Dates: start: 20040514
  2. ARIMIDEX [Suspect]
     Indication: BREAST CANCER
     Route: 048
     Dates: start: 20040514
  3. ZOMETA [Suspect]
     Indication: BREAST CANCER
     Dates: start: 20040514

REACTIONS (1)
  - HYPERTENSIVE CRISIS [None]
